FAERS Safety Report 5371955-6 (Version None)
Quarter: 2007Q2

REPORT INFORMATION
  Report Type: 
  Country: None (occurrence: None)
  Receive Date: 20070619
  Receipt Date: 20070426
  Transmission Date: 20071010
  Serious: No
  Sender: FDA-Public Use
  Company Number: 2007US001157

PATIENT
  Age: 46 Year
  Sex: Female

DRUGS (1)
  1. VESICARE [Suspect]
     Indication: MICTURITION URGENCY
     Dosage: 5 MG, UID/QD, ORAL  5 MG, BID
     Route: 048
     Dates: start: 20060401

REACTIONS (1)
  - DRUG INEFFECTIVE [None]
